FAERS Safety Report 12733975 (Version 1)
Quarter: 2016Q3

REPORT INFORMATION
  Report Type: Spontaneous
  Country: US (occurrence: US)
  Receive Date: 20160912
  Receipt Date: 20160912
  Transmission Date: 20161109
  Serious: Yes (Other)
  Sender: FDA-Public Use
  Company Number: US-BEH-200409153

PATIENT
  Age: 12 Year
  Sex: Male
  Weight: 63 kg

DRUGS (3)
  1. MONONINE [Suspect]
     Active Substance: COAGULATION FACTOR IX HUMAN
     Indication: RENAL HAEMATOMA
     Dosage: DAILY DOSE QUANTITY: 4275, DAILY DOSE UNIT: U
     Dates: start: 20040204, end: 20040204
  2. MONONINE [Suspect]
     Active Substance: COAGULATION FACTOR IX HUMAN
     Dosage: DAILY DOSE QUANTITY: 4275, DAILY DOSE UNIT: U
     Dates: start: 20040204, end: 20040204
  3. MONONINE [Suspect]
     Active Substance: COAGULATION FACTOR IX HUMAN
     Indication: FACTOR IX DEFICIENCY
     Dosage: DAILY DOSE QUANTITY: 4275, DAILY DOSE UNIT: U
     Dates: start: 20040204, end: 20040204

REACTIONS (1)
  - Anaphylactic reaction [Unknown]
